FAERS Safety Report 23488635 (Version 1)
Quarter: 2024Q1

REPORT INFORMATION
  Report Type: Spontaneous
  Country: CN (occurrence: CN)
  Receive Date: 20240206
  Receipt Date: 20240206
  Transmission Date: 20240409
  Serious: Yes (Other)
  Sender: FDA-Public Use
  Company Number: CN-ORGANON-O2402CHN000239

PATIENT
  Age: 6 Year
  Sex: Male

DRUGS (1)
  1. SINGULAIR [Suspect]
     Active Substance: MONTELUKAST SODIUM
     Indication: Pneumonia
     Dosage: 4 MILLIGRAM, QD
     Route: 048
     Dates: start: 20231202, end: 20231203

REACTIONS (1)
  - Tourette^s disorder [Recovered/Resolved]

NARRATIVE: CASE EVENT DATE: 20231203
